FAERS Safety Report 9920005 (Version 1)
Quarter: 2014Q1

REPORT INFORMATION
  Report Type: Spontaneous
  Country: IT (occurrence: IT)
  Receive Date: 20140224
  Receipt Date: 20140224
  Transmission Date: 20141002
  Serious: Yes (Hospitalization)
  Sender: FDA-Public Use
  Company Number: IT-TEVA-464341ISR

PATIENT
  Age: 73 Year
  Sex: Female

DRUGS (3)
  1. CARBOPLATINO [Suspect]
     Indication: OVARIAN CANCER
     Dosage: 345 MILLIGRAM DAILY;
     Route: 041
     Dates: start: 20131231, end: 20140127
  2. ANZATAX [Suspect]
     Indication: OVARIAN CANCER
     Dosage: 230 MILLIGRAM DAILY; CONCENTRATE FOR SOLUTION FOR INTRAVENOUS INFUSION
     Route: 041
     Dates: start: 20131231, end: 20140127
  3. GRANISETRON KABI [Suspect]
     Indication: NAUSEA
     Dosage: CONCENTRATE FOR SOLUTION FOR INJECTION
     Route: 042
     Dates: start: 20140127, end: 20140127

REACTIONS (4)
  - Abdominal pain [Recovering/Resolving]
  - Constipation [Recovering/Resolving]
  - Hypokalaemia [Recovering/Resolving]
  - Vomiting [Recovering/Resolving]
